FAERS Safety Report 7476459-2 (Version None)
Quarter: 2011Q2

REPORT INFORMATION
  Report Type: 
  Country: None (occurrence: None)
  Receive Date: 20110512
  Receipt Date: 20110509
  Transmission Date: 20111010
  Serious: Yes (Other)
  Sender: FDA-Public Use
  Company Number: BE-AMGEN-BELSP2011024011

PATIENT
  Age: 62 Year
  Sex: Female

DRUGS (5)
  1. ENBREL [Suspect]
     Indication: PRODUCT USED FOR UNKNOWN INDICATION
     Dosage: 50 MG, WEEKLY
     Dates: start: 20110427
  2. NEBIVOLOL [Concomitant]
     Dosage: 5 MG, UNK
  3. DAKAR [Concomitant]
     Dosage: 30 MG, UNK
  4. OLMESARTAN MEDOXOMIL [Concomitant]
     Dosage: 20 MG, UNK
  5. ZANIDIP [Concomitant]
     Dosage: UNK

REACTIONS (2)
  - BLOOD PRESSURE INCREASED [None]
  - HEART RATE INCREASED [None]
